FAERS Safety Report 14715469 (Version 1)
Quarter: 2018Q2

REPORT INFORMATION
  Report Type: Spontaneous
  Country: BG (occurrence: BG)
  Receive Date: 20180404
  Receipt Date: 20180404
  Transmission Date: 20180711
  Serious: Yes (Hospitalization, Other)
  Sender: FDA-Public Use
  Company Number: BG-ASTRAZENECA-2018SE41162

PATIENT
  Age: 2 Year
  Sex: Female

DRUGS (2)
  1. PULMICORT RESPULES [Suspect]
     Active Substance: BUDESONIDE
     Indication: LARYNGITIS
     Dosage: 1/2 DOSE UNIT (0.25 MG/ML) TWICE DAILY (MORNING AND EVENNING)
     Route: 055
  2. NACL [Concomitant]
     Active Substance: SODIUM CHLORIDE
     Indication: LARYNGITIS
     Route: 055

REACTIONS (3)
  - Incorrect dose administered [Unknown]
  - Dyspnoea [Unknown]
  - Cough [Unknown]
